FAERS Safety Report 8837390 (Version 2)
Quarter: 2012Q4

REPORT INFORMATION
  Report Type: 
  Country: AU (occurrence: AU)
  Receive Date: 20121012
  Receipt Date: 20121018
  Transmission Date: 20130627
  Serious: Yes (Hospitalization, Other)
  Sender: FDA-Public Use
  Company Number: PHHY2012AU089655

PATIENT
  Sex: Female

DRUGS (4)
  1. ACLASTA [Suspect]
     Dosage: 5 mg
     Route: 042
     Dates: start: 20090605
  2. ACLASTA [Suspect]
     Dosage: 5 mg
     Route: 042
     Dates: start: 20100630
  3. ACLASTA [Suspect]
     Dosage: 5 mg
     Route: 042
     Dates: start: 20110907
  4. NEXIUM [Concomitant]
     Indication: PEPTIC ULCER
     Route: 048
     Dates: start: 2005

REACTIONS (5)
  - Upper limb fracture [Recovering/Resolving]
  - Humerus fracture [Recovered/Resolved]
  - Fall [Recovering/Resolving]
  - Dizziness [Recovering/Resolving]
  - Syncope [Recovered/Resolved]
